FAERS Safety Report 9664801 (Version 1)
Quarter: 2013Q4

REPORT INFORMATION
  Report Type: Spontaneous
  Country: US (occurrence: US)
  Receive Date: 20131101
  Receipt Date: 20131101
  Transmission Date: 20140711
  Serious: No
  Sender: FDA-Public Use
  Company Number: US-GLAXOSMITHKLINE-A0995787A

PATIENT
  Age: 59 Year
  Sex: Male

DRUGS (6)
  1. RYTHMOL SR [Suspect]
     Indication: ATRIAL FIBRILLATION
     Dosage: 225CAP TWICE PER DAY
     Route: 048
     Dates: start: 20120617, end: 20120624
  2. PRADAXA [Concomitant]
  3. METOPROLOL [Concomitant]
     Dosage: 25MG TWICE PER DAY
  4. DIGOXIN [Concomitant]
     Dosage: 250MCG PER DAY
  5. EFFEXOR XR [Concomitant]
     Dosage: 150MG PER DAY
  6. EFFEXOR XR [Concomitant]
     Dosage: 75MG PER DAY

REACTIONS (2)
  - Dry mouth [Unknown]
  - Dysgeusia [Unknown]
